FAERS Safety Report 9456242 (Version 1)
Quarter: 2013Q3

REPORT INFORMATION
  Report Type: Spontaneous
  Country: US (occurrence: None)
  Receive Date: 20130812
  Receipt Date: 20130812
  Transmission Date: 20140515
  Serious: Yes (Hospitalization, Disabling, Other)
  Sender: FDA-Public Use
  Company Number: None

PATIENT
  Age: 26 Year
  Sex: Female
  Weight: 70.31 kg

DRUGS (3)
  1. MIRENA [Suspect]
  2. EXFORGE [Concomitant]
  3. VITAMINS [Suspect]

REACTIONS (6)
  - Diplopia [None]
  - Tinnitus [None]
  - Headache [None]
  - Photosensitivity reaction [None]
  - Vision blurred [None]
  - Eye pain [None]
